FAERS Safety Report 13342749 (Version 1)
Quarter: 2017Q1

REPORT INFORMATION
  Report Type: Spontaneous
  Country: RU (occurrence: RU)
  Receive Date: 20170316
  Receipt Date: 20170316
  Transmission Date: 20170428
  Serious: Yes (Hospitalization)
  Sender: FDA-Public Use
  Company Number: RU-PFIZER INC-2017110050

PATIENT
  Age: 65 Year
  Sex: Male

DRUGS (1)
  1. CELEBREX [Suspect]
     Active Substance: CELECOXIB
     Indication: PERIARTHRITIS
     Dosage: 200 MG, 2X/DAY

REACTIONS (1)
  - Atrial fibrillation [Unknown]
